FAERS Safety Report 16407892 (Version 1)
Quarter: 2019Q2

REPORT INFORMATION
  Report Type: Spontaneous
  Country: US (occurrence: US)
  Receive Date: 20190610
  Receipt Date: 20190610
  Transmission Date: 20190711
  Serious: No
  Sender: FDA-Public Use
  Company Number: US-JNJFOC-20190534751

PATIENT
  Sex: Female
  Weight: 74.84 kg

DRUGS (1)
  1. AXERT [Suspect]
     Active Substance: ALMOTRIPTAN MALATE
     Indication: PRODUCT USED FOR UNKNOWN INDICATION
     Route: 048

REACTIONS (3)
  - Intentional underdose [Not Recovered/Not Resolved]
  - Product dose omission [Not Recovered/Not Resolved]
  - Product availability issue [Not Recovered/Not Resolved]
